FAERS Safety Report 19086832 (Version 1)
Quarter: 2021Q2

REPORT INFORMATION
  Report Type: Spontaneous
  Country: US (occurrence: US)
  Receive Date: 20210401
  Receipt Date: 20210401
  Transmission Date: 20210717
  Serious: No
  Sender: FDA-Public Use
  Company Number: None

PATIENT
  Age: 73 Year
  Sex: Female

DRUGS (1)
  1. AMBRISENTAN  5MG [Suspect]
     Active Substance: AMBRISENTAN

REACTIONS (3)
  - Dyspnoea [None]
  - Fluid retention [None]
  - Nasal congestion [None]
